FAERS Safety Report 20079075 (Version 1)
Quarter: 2021Q4

REPORT INFORMATION
  Report Type: Spontaneous
  Country: US (occurrence: US)
  Receive Date: 20211117
  Receipt Date: 20211117
  Transmission Date: 20220303
  Serious: No
  Sender: FDA-Public Use
  Company Number: US-ALLERGAN-2128200US

PATIENT
  Sex: Female

DRUGS (2)
  1. COMBIGAN [Suspect]
     Active Substance: BRIMONIDINE TARTRATE\TIMOLOL MALEATE
     Indication: Glaucoma
     Dosage: 10 GTT, QD, 3 DROPS IN EACH EYE IN THE MORNING AND 2 DROPS IN EACH EYE AT NIGHT
  2. nspecified blood pressure pill [Concomitant]
     Indication: Hypertension
     Dosage: UNK

REACTIONS (3)
  - Lacrimation increased [Unknown]
  - Incorrect dose administered [Unknown]
  - Product prescribing error [Unknown]
